FAERS Safety Report 11996032 (Version 1)
Quarter: 2016Q1

REPORT INFORMATION
  Report Type: Report from Study
  Country: CA (occurrence: CA)
  Receive Date: 20160203
  Receipt Date: 20160203
  Transmission Date: 20160526
  Serious: Yes (Other)
  Sender: FDA-Public Use
  Company Number: CA-JNJFOC-20160115596

PATIENT
  Age: 14 Year
  Sex: Male
  Weight: 46 kg

DRUGS (5)
  1. PREDNISONE. [Concomitant]
     Active Substance: PREDNISONE
     Route: 048
  2. CEFUROXIME. [Concomitant]
     Active Substance: CEFUROXIME
     Route: 065
  3. REMICADE [Suspect]
     Active Substance: INFLIXIMAB
     Indication: CROHN^S DISEASE
     Route: 042
     Dates: start: 20140613
  4. METHOTREXATE [Concomitant]
     Active Substance: METHOTREXATE
     Route: 065
  5. CICLESONIDE [Concomitant]
     Active Substance: CICLESONIDE
     Route: 065

REACTIONS (5)
  - Lower respiratory tract infection [Recovering/Resolving]
  - Sinus congestion [Unknown]
  - Respiratory tract congestion [Unknown]
  - Hepatic enzyme increased [Recovering/Resolving]
  - Productive cough [Recovering/Resolving]

NARRATIVE: CASE EVENT DATE: 20151221
